FAERS Safety Report 8885182 (Version 2)
Quarter: 2012Q4

REPORT INFORMATION
  Report Type: 
  Country: FR (occurrence: FR)
  Receive Date: 20121105
  Receipt Date: 20121211
  Transmission Date: 20130627
  Serious: Yes (Hospitalization, Other)
  Sender: FDA-Public Use
  Company Number: FR-AMGEN-FRASP2012069502

PATIENT
  Age: 50 Year
  Sex: Female
  Weight: 50 kg

DRUGS (4)
  1. NEULASTA [Suspect]
     Indication: BREAST CANCER
     Dosage: 6 mg one time
     Route: 058
     Dates: start: 20121019, end: 20121019
  2. 5-FLUOROURACIL /00098801/ [Concomitant]
     Indication: BREAST CANCER
     Dosage: 730 UNK, UNK
     Route: 042
     Dates: start: 20121018, end: 20121018
  3. EPIRUBICIN [Concomitant]
     Indication: BREAST CANCER
     Dosage: 146 UNK, UNK
     Route: 042
  4. CYCLOPHOSPHAMIDE [Concomitant]
     Indication: BREAST CANCER
     Dosage: 730 UNK, UNK
     Route: 042

REACTIONS (6)
  - Laryngeal oedema [Unknown]
  - Nasal oedema [Unknown]
  - Localised oedema [Unknown]
  - Pruritus [Recovered/Resolved]
  - Erythema [Recovered/Resolved]
  - Hypersensitivity [Unknown]
